FAERS Safety Report 5345073-7 (Version None)
Quarter: 2007Q2

REPORT INFORMATION
  Report Type: 
  Country: None (occurrence: None)
  Receive Date: 20070601
  Receipt Date: 20070517
  Transmission Date: 20071010
  Serious: Yes (Life-Threatening, Hospitalization, Other)
  Sender: FDA-Public Use
  Company Number: 100#03#2007-01821

PATIENT
  Age: 90 Year
  Sex: Female

DRUGS (8)
  1. DOXYCYCLINE [Suspect]
     Indication: DRUG USE FOR UNKNOWN INDICATION
     Dosage: 100 MG, ORAL
     Route: 048
     Dates: start: 20070309, end: 20070311
  2. ACETYLSALICYLIC ACID (ACETYLSALICYLIC ACID) (ACETYLSALICYLIC ACID) [Concomitant]
  3. BISOPROLOL FUMARATE [Concomitant]
  4. DIGOXIN [Concomitant]
  5. ENALAPRIL (ENALAPRIL) (ENALAPRIL, ENALAPRIL MALEATE) [Concomitant]
  6. FRUSEMIDE(FUROSEMIDE) (FRUSEMIDE) [Concomitant]
  7. PAROXETINE HCL [Concomitant]
  8. RAMIPRIL(RAMIPRIL) (RAMIPRIL) [Concomitant]

REACTIONS (3)
  - AGRANULOCYTOSIS [None]
  - ANAEMIA [None]
  - DIARRHOEA [None]
